FAERS Safety Report 9698333 (Version 1)
Quarter: 2013Q4

REPORT INFORMATION
  Report Type: Report from Study
  Country: KR (occurrence: KR)
  Receive Date: 20131120
  Receipt Date: 20131120
  Transmission Date: 20140711
  Serious: Yes (Death, Hospitalization, Other)
  Sender: FDA-Public Use
  Company Number: KR-ABBVIE-13P-090-1170248-00

PATIENT
  Age: 46 Year
  Sex: Male

DRUGS (14)
  1. KALETRA 200/50 [Suspect]
     Indication: HIV INFECTION
     Dosage: 200/50
     Route: 048
     Dates: start: 20130530
  2. TRUVADA [Suspect]
     Indication: PRODUCT USED FOR UNKNOWN INDICATION
  3. 3TC/AZT [Concomitant]
     Indication: ANTIRETROVIRAL THERAPY
     Dosage: 2 TABLETS DAILY
     Dates: start: 20130530, end: 20130618
  4. TDF/FTC [Concomitant]
     Indication: ANTIRETROVIRAL THERAPY
     Dates: start: 20130619
  5. QUETAPIN [Concomitant]
     Indication: PROGRESSIVE MULTIFOCAL LEUKOENCEPHALOPATHY
     Route: 048
     Dates: start: 20130528, end: 20130731
  6. SEPTRIN [Concomitant]
     Indication: ANTIFUNGAL PROPHYLAXIS
     Dosage: 2 TABLETS DAILY
     Route: 048
     Dates: start: 20130528, end: 20130623
  7. AZITOPS [Concomitant]
     Indication: ANTIFUNGAL PROPHYLAXIS
     Dosage: 5 TABLETS DAILY
     Route: 048
     Dates: start: 20130528, end: 20130815
  8. DILATREND [Concomitant]
     Indication: CONGESTIVE CARDIOMYOPATHY
     Dosage: 2 TABLETS DAILY
     Route: 048
     Dates: start: 20130528, end: 20130808
  9. RAMIPRIN [Concomitant]
     Indication: CONGESTIVE CARDIOMYOPATHY
     Route: 048
     Dates: start: 20130528, end: 20130808
  10. DIGOSIN [Concomitant]
     Indication: CONGESTIVE CARDIOMYOPATHY
     Route: 048
     Dates: start: 20130809
  11. BORYUNG CEFTRIAXONE [Concomitant]
     Indication: ANTIFUNGAL PROPHYLAXIS
     Dosage: 2 GRAMS DAILY
     Route: 042
     Dates: start: 20130729, end: 20130731
  12. KUNWHA CEFTAZIDIME [Concomitant]
     Indication: ANTIFUNGAL PROPHYLAXIS
     Dosage: 6 GRAMS DAILY
     Route: 042
     Dates: start: 20130801, end: 20130805
  13. YUHAN MEROPEN [Concomitant]
     Indication: ANTIFUNGAL PROPHYLAXIS
     Dosage: 3 GRAMS DAILY
     Route: 042
     Dates: start: 20130806, end: 20130811
  14. TAPOCIN [Concomitant]
     Indication: ANTIFUNGAL PROPHYLAXIS
     Route: 042
     Dates: start: 20130805, end: 20130811

REACTIONS (4)
  - Progressive multifocal leukoencephalopathy [Fatal]
  - Immune reconstitution inflammatory syndrome [Fatal]
  - Pancytopenia [Recovered/Resolved]
  - Asthenia [Recovered/Resolved]
